FAERS Safety Report 6193678-6 (Version None)
Quarter: 2009Q2

REPORT INFORMATION
  Report Type: 
  Country: None (occurrence: None)
  Receive Date: 20090518
  Receipt Date: 20090510
  Transmission Date: 20091009
  Serious: Yes (Other)
  Sender: FDA-Public Use
  Company Number: US-PFIZER INC-2009158270

PATIENT
  Sex: Female
  Weight: 94 kg

DRUGS (6)
  1. CAMPTOSAR [Suspect]
     Indication: COLON CANCER METASTATIC
     Dosage: 250 MG/M2, EVERY THREE WEKS
     Route: 042
  2. FLUOROURACIL [Suspect]
     Indication: COLON CANCER METASTATIC
     Route: 042
  3. XELODA [Suspect]
     Indication: COLON CANCER METASTATIC
     Dosage: 1000 MG, EVERY THREE WEEKS
     Route: 048
  4. LEUCOVORIN CALCIUM [Suspect]
     Indication: COLON CANCER METASTATIC
     Route: 042
  5. AVASTIN [Suspect]
     Indication: COLON CANCER METASTATIC
     Dosage: 5 MG/KG, EVERY TWO WEEKS
     Route: 042
  6. VICODIN ES [Concomitant]
     Indication: PAIN
     Dosage: 1 TO 2 BY ONCE EVERY 6 HOURS AS NEEDED
     Route: 048
     Dates: start: 20080112, end: 20080930

REACTIONS (3)
  - EPISTAXIS [None]
  - NASAL DISORDER [None]
  - NASAL SEPTUM PERFORATION [None]
